FAERS Safety Report 11457038 (Version 1)
Quarter: 2015Q3

REPORT INFORMATION
  Report Type: Report from Study
  Country: AT (occurrence: AT)
  Receive Date: 20150904
  Receipt Date: 20150904
  Transmission Date: 20151125
  Serious: Yes (Hospitalization)
  Sender: FDA-Public Use
  Company Number: AT-ROCHE-1043793

PATIENT
  Age: 46 Year
  Sex: Female
  Weight: 44.5 kg

DRUGS (6)
  1. CARBOPLATIN. [Suspect]
     Active Substance: CARBOPLATIN
     Indication: OVARIAN CANCER
     Dosage: LAST DOSE WAS ADMINISTERED ON 31/JAN/2012 PRIOR TO SAE
     Route: 042
     Dates: start: 20120111, end: 20120221
  2. BEVACIZUMAB [Suspect]
     Active Substance: BEVACIZUMAB
     Indication: OVARIAN CANCER
     Dosage: LAST DOSE WAS ADMINISTERED ON 31/JAN/2012 PRIOR TO SAE
     Route: 042
     Dates: start: 20120131, end: 20120221
  3. PACLITAXEL. [Suspect]
     Active Substance: PACLITAXEL
     Route: 065
     Dates: start: 20120301
  4. CARBOPLATIN. [Suspect]
     Active Substance: CARBOPLATIN
     Route: 065
     Dates: start: 20120301
  5. BEVACIZUMAB [Suspect]
     Active Substance: BEVACIZUMAB
     Route: 065
     Dates: start: 20120301
  6. PACLITAXEL. [Suspect]
     Active Substance: PACLITAXEL
     Indication: OVARIAN CANCER
     Dosage: LAST DOSE WAS ADMINISTERED ON 31/JAN/2012 PRIOR TO SAE
     Route: 042
     Dates: start: 20120111

REACTIONS (2)
  - Anaemia [Recovered/Resolved]
  - Lymphocele [Recovered/Resolved]

NARRATIVE: CASE EVENT DATE: 20120221
